FAERS Safety Report 7672892-4 (Version None)
Quarter: 2011Q3

REPORT INFORMATION
  Report Type: 
  Country: None (occurrence: None)
  Receive Date: 20110809
  Receipt Date: 20110802
  Transmission Date: 20111222
  Serious: Yes (Other)
  Sender: FDA-Public Use
  Company Number: US-GENENTECH-320865

PATIENT
  Sex: Male
  Weight: 70 kg

DRUGS (1)
  1. LUCENTIS [Suspect]
     Indication: AGE-RELATED MACULAR DEGENERATION
     Dosage: UNK
     Dates: end: 20100401

REACTIONS (3)
  - RHINORRHOEA [None]
  - PHOTOSENSITIVITY REACTION [None]
  - CANDIDIASIS [None]
